FAERS Safety Report 9635997 (Version 2)
Quarter: 2013Q4

REPORT INFORMATION
  Report Type: Spontaneous
  Country: JP (occurrence: JP)
  Receive Date: 20131021
  Receipt Date: 20131113
  Transmission Date: 20140711
  Serious: Yes (Life-Threatening, Hospitalization, Other)
  Sender: FDA-Public Use
  Company Number: JP-ROCHE-1289837

PATIENT
  Age: 75 Year
  Sex: Male
  Weight: 53 kg

DRUGS (8)
  1. XELODA [Suspect]
     Indication: ADJUVANT THERAPY
     Route: 048
     Dates: start: 20130909, end: 20130921
  2. XARELTO [Concomitant]
     Indication: ATRIAL FIBRILLATION
     Route: 048
     Dates: start: 20130830, end: 20130920
  3. ELPLAT [Concomitant]
     Indication: ADJUVANT THERAPY
     Route: 041
     Dates: start: 20130909, end: 20130909
  4. GRANISETRON [Concomitant]
     Indication: PROPHYLAXIS
     Route: 065
     Dates: start: 20130909, end: 20130909
  5. DEXART [Concomitant]
     Indication: PROPHYLAXIS
     Route: 065
     Dates: start: 20130909, end: 20130909
  6. PYDOXAL [Concomitant]
     Indication: PROPHYLAXIS
     Route: 048
     Dates: start: 20130909, end: 20130920
  7. LEUCON [Concomitant]
     Indication: PROPHYLAXIS
     Route: 048
     Dates: start: 20130909, end: 20130920
  8. DECADRON [Concomitant]
     Indication: PROPHYLAXIS
     Route: 048
     Dates: start: 20130910, end: 20130911

REACTIONS (11)
  - Diarrhoea [Recovering/Resolving]
  - Mucous membrane disorder [Recovering/Resolving]
  - Disseminated intravascular coagulation [Recovered/Resolved]
  - Melaena [Unknown]
  - Oral mucosa erosion [Unknown]
  - Circulatory collapse [Unknown]
  - Ileus [Unknown]
  - Ileus paralytic [Unknown]
  - Sepsis [Unknown]
  - Renal failure [Recovering/Resolving]
  - Neutropenia [Recovered/Resolved]
